FAERS Safety Report 10888865 (Version 3)
Quarter: 2015Q1

REPORT INFORMATION
  Report Type: Spontaneous
  Country: US (occurrence: US)
  Receive Date: 20150305
  Receipt Date: 20150317
  Transmission Date: 20150721
  Serious: Yes (Hospitalization)
  Sender: FDA-Public Use
  Company Number: US-HORIZON-VIM-0023-2015

PATIENT
  Age: 37 Year
  Sex: Male

DRUGS (3)
  1. ASA [Suspect]
     Active Substance: ASPIRIN
     Dates: start: 20150113, end: 20150123
  2. VIMOVO [Suspect]
     Active Substance: ESOMEPRAZOLE MAGNESIUM\NAPROXEN
     Indication: PROCEDURAL PAIN
     Dates: start: 20150121, end: 20150123
  3. NAPROXEN. [Suspect]
     Active Substance: NAPROXEN
     Dates: start: 20150113, end: 20150121

REACTIONS (2)
  - Gastrointestinal haemorrhage [Recovered/Resolved]
  - Loss of consciousness [Recovered/Resolved]

NARRATIVE: CASE EVENT DATE: 20150123
